FAERS Safety Report 20835785 (Version 1)
Quarter: 2022Q2

REPORT INFORMATION
  Report Type: Spontaneous
  Country: US (occurrence: US)
  Receive Date: 20220516
  Receipt Date: 20220516
  Transmission Date: 20220721
  Serious: No
  Sender: FDA-Public Use
  Company Number: US-BIOMARINAP-US-2022-143179

PATIENT
  Age: 14 Month
  Sex: Male
  Weight: 12.2 kg

DRUGS (1)
  1. KUVAN [Suspect]
     Active Substance: SAPROPTERIN DIHYDROCHLORIDE
     Indication: Phenylketonuria
     Dosage: 200 MILLIGRAM, QD
     Route: 048
     Dates: start: 20220420

REACTIONS (4)
  - Urticaria [Recovered/Resolved]
  - Peripheral swelling [Unknown]
  - Agitation [Unknown]
  - Trichotillomania [Unknown]

NARRATIVE: CASE EVENT DATE: 20220401
